FAERS Safety Report 5514864-1 (Version None)
Quarter: 2007Q4

REPORT INFORMATION
  Report Type: 
  Country: None (occurrence: None)
  Receive Date: 20071113
  Receipt Date: 20070221
  Transmission Date: 20080405
  Serious: No
  Sender: FDA-Public Use
  Company Number: A0420620A

PATIENT
  Age: 67 Year
  Sex: Female

DRUGS (10)
  1. COREG [Suspect]
     Dosage: 25MG TWICE PER DAY
     Route: 048
     Dates: start: 20030101, end: 20030811
  2. DIOVAN [Concomitant]
  3. FUROSEMIDE [Concomitant]
  4. GLUCOTROL XL [Concomitant]
  5. PREMARIN [Concomitant]
  6. ACTOS [Concomitant]
  7. ALPHAGAN [Concomitant]
  8. TRAVATAN [Concomitant]
  9. CELEBREX [Concomitant]
  10. MULTI-VITAMIN [Concomitant]

REACTIONS (3)
  - ALOPECIA [None]
  - DRY SKIN [None]
  - HAIR DISORDER [None]
